FAERS Safety Report 18257906 (Version 1)
Quarter: 2020Q3

REPORT INFORMATION
  Report Type: Spontaneous
  Country: US (occurrence: US)
  Receive Date: 20200911
  Receipt Date: 20200911
  Transmission Date: 20201103
  Serious: Yes (Hospitalization)
  Sender: FDA-Public Use
  Company Number: None

PATIENT
  Age: 77 Year
  Sex: Male
  Weight: 114.5 kg

DRUGS (15)
  1. REMDESIVIR. [Suspect]
     Active Substance: REMDESIVIR
     Indication: COVID-19 PNEUMONIA
     Dosage: ?          OTHER FREQUENCY:ONCE;?
     Route: 041
     Dates: start: 20200704, end: 20200709
  2. METOPROLOL SUCCINATE 25 MG TAB [Concomitant]
     Dates: start: 20200703, end: 20200707
  3. CEFTRIAXONE 1 GM [Concomitant]
     Active Substance: CEFTRIAXONE
     Dates: start: 20200704, end: 20200710
  4. CHOLECALCIFEROL (VIT D3) 5000 UNITS CAPSULE [Concomitant]
     Dates: start: 20200705, end: 20200715
  5. PROPOFOL INFUSION [Concomitant]
     Active Substance: PROPOFOL
     Dates: start: 20200704, end: 20200715
  6. RIVAROXABAN 20 MG TAB [Concomitant]
     Dates: start: 20200703, end: 20200712
  7. DEXAMETHASONE 6 MG [Concomitant]
     Dates: start: 20200703, end: 20200714
  8. AZITHROMYCIN 500 MG IV [Concomitant]
     Dates: start: 20200703, end: 20200704
  9. AMPICILLIN?SULBACTAM 3 GM IV [Concomitant]
     Dates: start: 20200703, end: 20200704
  10. ZINC SULFATE 220 MG CAPSULE [Concomitant]
     Dates: start: 20200704, end: 20200715
  11. SODIUM BICARBONATE 650 MG TAB [Concomitant]
     Dates: start: 20200704, end: 20200707
  12. ASCORBIC ACID 1000 MG TAB [Concomitant]
     Dates: start: 20200705, end: 20200715
  13. INSULIN INFUSION [Concomitant]
     Dates: start: 20200705, end: 20200707
  14. ALBUTEROL HFA [Concomitant]
     Active Substance: ALBUTEROL SULFATE
     Dates: start: 20200703, end: 20200715
  15. BUDESONIDE?FORMOTEROL 160?4.5 MCG/PUFF [Concomitant]
     Dates: start: 20200704, end: 20200715

REACTIONS (2)
  - Product dose omission issue [None]
  - Product storage error [None]

NARRATIVE: CASE EVENT DATE: 20200704
